FAERS Safety Report 25601646 (Version 1)
Quarter: 2025Q3

REPORT INFORMATION
  Report Type: Other
  Country: AU (occurrence: AU)
  Receive Date: 20250724
  Receipt Date: 20250724
  Transmission Date: 20251021
  Serious: Yes (Other)
  Sender: LUPIN
  Company Number: AU-LUPIN PHARMACEUTICALS INC.-2025-06395

PATIENT
  Age: 49 Year
  Sex: Female

DRUGS (6)
  1. FLUOXETINE [Suspect]
     Active Substance: FLUOXETINE HYDROCHLORIDE
     Indication: Product used for unknown indication
     Route: 065
  2. METFORMIN HYDROCHLORIDE [Suspect]
     Active Substance: METFORMIN HYDROCHLORIDE
     Indication: Product used for unknown indication
     Route: 065
  3. ROSUVASTATIN [Suspect]
     Active Substance: ROSUVASTATIN
     Indication: Product used for unknown indication
     Route: 065
  4. LITHIUM CARBONATE [Suspect]
     Active Substance: LITHIUM CARBONATE
     Indication: Product used for unknown indication
     Route: 065
  5. CLOZARIL [Suspect]
     Active Substance: CLOZAPINE
     Indication: Product used for unknown indication
     Route: 065
  6. BENZTROPINE MESYLATE [Suspect]
     Active Substance: BENZTROPINE MESYLATE
     Indication: Product used for unknown indication
     Route: 065

REACTIONS (13)
  - Cardiomyopathy [Unknown]
  - Mitral valve incompetence [Unknown]
  - Blood creatine phosphokinase decreased [Unknown]
  - Blood pressure increased [Unknown]
  - C-reactive protein increased [Unknown]
  - Ejection fraction decreased [Unknown]
  - Gamma-glutamyltransferase increased [Unknown]
  - Left ventricular dysfunction [Unknown]
  - Monocytosis [Unknown]
  - Neutrophilia [Unknown]
  - Tachycardia [Unknown]
  - Troponin increased [Unknown]
  - White blood cell count increased [Unknown]
